FAERS Safety Report 19298439 (Version 2)
Quarter: 2021Q3

REPORT INFORMATION
  Report Type: Report from Study
  Country: None (occurrence: BR)
  Receive Date: 20210525
  Receipt Date: 20210824
  Transmission Date: 20211014
  Serious: Yes (Disabling)
  Sender: FDA-Public Use
  Company Number: BR-ABBVIE-21K-020-3917053-00

PATIENT
  Sex: Male
  Weight: 67 kg

DRUGS (6)
  1. HUMIRA [Suspect]
     Active Substance: ADALIMUMAB
     Indication: ANKYLOSING SPONDYLITIS
     Route: 058
     Dates: start: 2019, end: 20210328
  2. HUMIRA [Suspect]
     Active Substance: ADALIMUMAB
     Route: 058
  3. AZULFIDINE [Concomitant]
     Active Substance: SULFASALAZINE
     Indication: PAIN
     Route: 048
     Dates: start: 2019
  4. METHOTREXATE SODIUM. [Concomitant]
     Active Substance: METHOTREXATE SODIUM
     Indication: PAIN
     Dosage: ONCE A WEEK,1 IN THE MORNING, 1 AT NIGHT
     Route: 048
     Dates: start: 2015
  5. OMEPRAZOLE. [Concomitant]
     Active Substance: OMEPRAZOLE
     Indication: PAIN
     Route: 048
     Dates: start: 2015
  6. PREDNISONE. [Concomitant]
     Active Substance: PREDNISONE
     Indication: PAIN
     Route: 048
     Dates: start: 2015

REACTIONS (8)
  - Musculoskeletal stiffness [Not Recovered/Not Resolved]
  - Pain [Recovering/Resolving]
  - Neck pain [Recovering/Resolving]
  - Joint range of motion decreased [Not Recovered/Not Resolved]
  - Insomnia [Recovering/Resolving]
  - Spinal pain [Recovering/Resolving]
  - Arthralgia [Recovering/Resolving]
  - Feeding disorder [Recovered/Resolved]

NARRATIVE: CASE EVENT DATE: 2021
